FAERS Safety Report 9751443 (Version 1)
Quarter: 2013Q4

REPORT INFORMATION
  Report Type: Spontaneous
  Country: US (occurrence: US)
  Receive Date: 20131212
  Receipt Date: 20131212
  Transmission Date: 20140711
  Serious: No
  Sender: FDA-Public Use
  Company Number: US-BIOGENIDEC-2013BI101665

PATIENT
  Age: 51 Year
  Sex: Female

DRUGS (13)
  1. TECFIDERA [Suspect]
     Indication: MULTIPLE SCLEROSIS
     Route: 048
     Dates: start: 201309
  2. KLONOPIN [Concomitant]
  3. MAXALT [Concomitant]
  4. GABAPENTIN [Concomitant]
  5. BACLOFEN [Concomitant]
  6. PROPRANOLOL ER [Concomitant]
  7. ACTONEL [Concomitant]
  8. VITAMIN D2 [Concomitant]
  9. CALCIUM [Concomitant]
  10. VITAMIN C [Concomitant]
  11. MAGNESIUM [Concomitant]
  12. FISH OIL [Concomitant]
  13. MULTIVITAMIN [Concomitant]

REACTIONS (1)
  - Urine odour abnormal [Unknown]
